FAERS Safety Report 6923792-6 (Version None)
Quarter: 2010Q3

REPORT INFORMATION
  Report Type: 
  Country: None (occurrence: None)
  Receive Date: 20100813
  Receipt Date: 20100803
  Transmission Date: 20110219
  Serious: Yes (Hospitalization, Other)
  Sender: FDA-Public Use
  Company Number: CA-ELI_LILLY_AND_COMPANY-CA201008001397

PATIENT
  Age: 77 Year
  Sex: Female

DRUGS (3)
  1. FORTEO [Suspect]
     Indication: OSTEOPOROSIS
     Dosage: 20 UG, DAILY (1/D)
     Dates: start: 20090913
  2. PLAVIX [Concomitant]
  3. ANTIHYPERTENSIVES [Concomitant]

REACTIONS (2)
  - FALL [None]
  - PELVIC FRACTURE [None]
